FAERS Safety Report 21124728 (Version 1)
Quarter: 2022Q3

REPORT INFORMATION
  Report Type: Spontaneous
  Country: SE (occurrence: SE)
  Receive Date: 20220725
  Receipt Date: 20220725
  Transmission Date: 20221027
  Serious: Yes (Death)
  Sender: FDA-Public Use
  Company Number: SE-NOVARTISPH-NVSC2022SE166573

PATIENT
  Age: 16 Year
  Sex: Female

DRUGS (5)
  1. RISPERIDONE [Suspect]
     Active Substance: RISPERIDONE
     Indication: Epilepsy
     Dosage: UNK
     Route: 065
  2. OLANZAPINE [Suspect]
     Active Substance: OLANZAPINE
     Indication: Epilepsy
     Dosage: 5 MG, FROM DAY 3 THROUGH 5
     Route: 065
  3. TRIMEPRAZINE [Concomitant]
     Active Substance: TRIMEPRAZINE
     Indication: Agitation
     Dosage: 20 MG, TID
     Route: 065
  4. DANTROLENE [Concomitant]
     Active Substance: DANTROLENE
     Indication: Product used for unknown indication
     Dosage: UNK, DAYS 13 AND 14
     Route: 065
  5. MORPHINE [Concomitant]
     Active Substance: MORPHINE
     Indication: Product used for unknown indication
     Dosage: UNK, DAY 18
     Route: 065

REACTIONS (2)
  - Hyperthermia [Fatal]
  - Rhabdomyolysis [Fatal]
